FAERS Safety Report 11661546 (Version 1)
Quarter: 2015Q4

REPORT INFORMATION
  Report Type: Spontaneous
  Country: JP (occurrence: JP)
  Receive Date: 20151026
  Receipt Date: 20151026
  Transmission Date: 20160304
  Serious: Yes (Other)
  Sender: FDA-Public Use
  Company Number: JP-MYLANLABS-2015M1035294

PATIENT

DRUGS (1)
  1. RABEPRAZOLE NA TABLETS 10MG ^MYLAN^ [Suspect]
     Active Substance: RABEPRAZOLE
     Indication: GASTROOESOPHAGEAL REFLUX DISEASE
     Dosage: 10 MG, QD
     Route: 048

REACTIONS (2)
  - Drug ineffective [Unknown]
  - Oesophagitis [Recovering/Resolving]
